FAERS Safety Report 8262079-9 (Version None)
Quarter: 2012Q2

REPORT INFORMATION
  Report Type: 
  Country: None (occurrence: None)
  Receive Date: 20120402
  Receipt Date: 20120323
  Transmission Date: 20120825
  Serious: Yes (Hospitalization, Other)
  Sender: FDA-Public Use
  Company Number: 2012SP016669

PATIENT
  Age: 50 Year
  Sex: Female

DRUGS (4)
  1. MEPROBAMATE [Suspect]
     Indication: PRODUCT USED FOR UNKNOWN INDICATION
     Dosage: 2000 MG;ONCE
     Dates: start: 20110715, end: 20110715
  2. ALCOHOL (ETHANOL) [Suspect]
     Indication: PRODUCT USED FOR UNKNOWN INDICATION
  3. REMERON [Suspect]
     Indication: PRODUCT USED FOR UNKNOWN INDICATION
     Dosage: 600 MG;ONCE
     Dates: start: 20110715, end: 20110715
  4. LORAZEPAM [Suspect]
     Dosage: 13 DF; ONCE
     Dates: start: 20110715, end: 20110715

REACTIONS (3)
  - ELECTROCARDIOGRAM QT PROLONGED [None]
  - SUICIDE ATTEMPT [None]
  - COMA [None]
